FAERS Safety Report 16485324 (Version 1)
Quarter: 2019Q2

REPORT INFORMATION
  Report Type: Spontaneous
  Country: US (occurrence: US)
  Receive Date: 20190627
  Receipt Date: 20190627
  Transmission Date: 20190711
  Serious: No
  Sender: FDA-Public Use
  Company Number: US-VIRTUS PHARMACEUTICALS, LLC-2019VTS00013

PATIENT
  Age: 45 Year
  Sex: Female

DRUGS (2)
  1. PROMETRIUM [Suspect]
     Active Substance: PROGESTERONE
     Indication: VAGINAL HAEMORRHAGE
  2. PROMETRIUM [Suspect]
     Active Substance: PROGESTERONE
     Indication: UTERINE LEIOMYOMA
     Dosage: UNK FOR 14 DAYS

REACTIONS (2)
  - Drug ineffective for unapproved indication [Unknown]
  - Menorrhagia [Not Recovered/Not Resolved]
